FAERS Safety Report 23684841 (Version 1)
Quarter: 2024Q1

REPORT INFORMATION
  Report Type: Spontaneous
  Country: CN (occurrence: CN)
  Receive Date: 20240328
  Receipt Date: 20240328
  Transmission Date: 20240410
  Serious: Yes (Hospitalization)
  Sender: FDA-Public Use
  Company Number: CN-002147023-NVSC2024CN064132

PATIENT
  Age: 39 Year
  Sex: Male

DRUGS (2)
  1. SACUBITRIL\VALSARTAN [Suspect]
     Active Substance: SACUBITRIL\VALSARTAN
     Indication: Cardiac failure
     Dosage: 100 MG, BID
     Route: 048
     Dates: start: 20240304, end: 20240306
  2. AMLODIPINE BESYLATE [Suspect]
     Active Substance: AMLODIPINE BESYLATE
     Indication: Cardiac failure
     Dosage: 5 MG, QD
     Route: 048
     Dates: start: 20240305, end: 20240306

REACTIONS (7)
  - Orthostatic hypotension [Recovering/Resolving]
  - Dizziness [Not Recovered/Not Resolved]
  - Asthenia [Unknown]
  - Gaze palsy [Unknown]
  - Pallor [Unknown]
  - Hyperhidrosis [Unknown]
  - Heart rate decreased [Unknown]

NARRATIVE: CASE EVENT DATE: 20240306
